FAERS Safety Report 6445600-2 (Version None)
Quarter: 2009Q4

REPORT INFORMATION
  Report Type: 
  Country: None (occurrence: None)
  Receive Date: 20091118
  Receipt Date: 20091118
  Transmission Date: 20100525
  Serious: No
  Sender: FDA-Public Use
  Company Number: None

PATIENT
  Age: 88 Year
  Sex: Male
  Weight: 81.6475 kg

DRUGS (1)
  1. TERBINAFINE HCL [Suspect]
     Indication: RASH
     Dosage: DAILY
     Dates: start: 20090926

REACTIONS (3)
  - AGEUSIA [None]
  - DYSGEUSIA [None]
  - WEIGHT DECREASED [None]
